FAERS Safety Report 17766390 (Version 1)
Quarter: 2020Q2

REPORT INFORMATION
  Report Type: Spontaneous
  Country: US (occurrence: US)
  Receive Date: 20200511
  Receipt Date: 20200511
  Transmission Date: 20200714
  Serious: No
  Sender: FDA-Public Use
  Company Number: US-PFIZER INC-2020187149

PATIENT

DRUGS (2)
  1. CELEBREX [Suspect]
     Active Substance: CELECOXIB
     Dosage: 200 MG
  2. CELEBREX [Suspect]
     Active Substance: CELECOXIB
     Dosage: 100 MG

REACTIONS (1)
  - Drug hypersensitivity [Unknown]
